FAERS Safety Report 6409349-4 (Version None)
Quarter: 2009Q4

REPORT INFORMATION
  Report Type: 
  Country: None (occurrence: None)
  Receive Date: 20091021
  Receipt Date: 20091012
  Transmission Date: 20100525
  Serious: Yes (Other)
  Sender: FDA-Public Use
  Company Number: CZ-BAXTER-2009BH015647

PATIENT
  Sex: Male

DRUGS (4)
  1. SODIUM CHLORIDE 0.9% IN PLASTIC CONTAINER [Suspect]
     Indication: MEDICATION DILUTION
     Route: 042
     Dates: start: 20091009, end: 20091009
  2. SODIUM CHLORIDE 0.9% IN PLASTIC CONTAINER [Suspect]
     Indication: SURGERY
     Route: 042
     Dates: start: 20091009, end: 20091009
  3. UNSPECIFIED VASODILATANT [Suspect]
     Indication: VASODILATION PROCEDURE
     Route: 042
     Dates: start: 20091009, end: 20091009
  4. UNSPECIFIED VASODILATANT [Suspect]
     Indication: SURGERY
     Route: 042
     Dates: start: 20091009, end: 20091009

REACTIONS (4)
  - BACTERIAL INFECTION [None]
  - CHILLS [None]
  - CONVULSION [None]
  - HEADACHE [None]
